FAERS Safety Report 14276319 (Version 1)
Quarter: 2017Q4

REPORT INFORMATION
  Report Type: Spontaneous
  Country: US (occurrence: US)
  Receive Date: 20171212
  Receipt Date: 20171212
  Transmission Date: 20180321
  Serious: Yes (Hospitalization, Other)
  Sender: FDA-Public Use
  Company Number: US-PFIZER INC-2017524565

PATIENT
  Age: 63 Year
  Sex: Female
  Weight: 45.59 kg

DRUGS (6)
  1. ATROPINE SULFATE/DIPHENOXYLATE HYDROCHLORIDE [Suspect]
     Active Substance: ATROPINE SULFATE\DIPHENOXYLATE HYDROCHLORIDE
     Indication: DIARRHOEA
     Dosage: SHE COULD TAKE 2 TABLETS WHEN THE DIARRHEA STARTED, THEN TAKE 1 TABLET EVERY 4-6 HOURS AS NEEDED
  2. TYLENOL [Concomitant]
     Active Substance: ACETAMINOPHEN
     Indication: ABDOMINAL PAIN
     Dosage: 500MG, 2 CAPLETS TWICE A DAY, AS NEEDED
  3. ATROPINE SULFATE/DIPHENOXYLATE HYDROCHLORIDE [Suspect]
     Active Substance: ATROPINE SULFATE\DIPHENOXYLATE HYDROCHLORIDE
     Dosage: 2.5MG TABLET, TAKE 1 TABLET BY MOUTH EVERY 4-6 HOURS AS NEEDED
     Route: 048
     Dates: end: 20170912
  4. DOCUSATE SODIUM. [Concomitant]
     Active Substance: DOCUSATE SODIUM
     Dosage: INCREASED TO 2 DAILY
     Dates: end: 20170911
  5. ATROPINE SULFATE, DIPHENOXYLATE HYDROCHLORIDE [Suspect]
     Active Substance: ATROPINE SULFATE\DIPHENOXYLATE HYDROCHLORIDE
  6. DOCUSATE SODIUM. [Concomitant]
     Active Substance: DOCUSATE SODIUM
     Indication: FAECES HARD
     Dosage: 100MG, TRIED 1 DAILY
     Dates: start: 201709

REACTIONS (7)
  - Fatigue [Recovering/Resolving]
  - Hallucination [Unknown]
  - Abdominal pain [Recovered/Resolved with Sequelae]
  - Intestinal obstruction [Recovered/Resolved with Sequelae]
  - Product use issue [Unknown]
  - Vomiting [Recovered/Resolved]
  - Drug ineffective [Recovered/Resolved with Sequelae]

NARRATIVE: CASE EVENT DATE: 201706
